FAERS Safety Report 9889454 (Version 3)
Quarter: 2014Q1

REPORT INFORMATION
  Report Type: Spontaneous
  Country: US (occurrence: US)
  Receive Date: 20140211
  Receipt Date: 20140310
  Transmission Date: 20141002
  Serious: No
  Sender: FDA-Public Use
  Company Number: US-GILEAD-2014-0094126

PATIENT
  Sex: Female

DRUGS (3)
  1. LETAIRIS [Suspect]
     Indication: PRODUCT USED FOR UNKNOWN INDICATION
     Dosage: 5 MG, QD
     Route: 065
     Dates: start: 20110921
  2. REMODULIN [Suspect]
  3. REVATIO [Concomitant]

REACTIONS (5)
  - Erythema [Unknown]
  - Haemorrhage [Unknown]
  - Pain [Unknown]
  - Diarrhoea [Unknown]
  - Pruritus [Unknown]
